FAERS Safety Report 19929599 (Version 1)
Quarter: 2021Q4

REPORT INFORMATION
  Report Type: Report from Study
  Country: DE (occurrence: DE)
  Receive Date: 20211007
  Receipt Date: 20211007
  Transmission Date: 20220303
  Serious: Yes (Hospitalization)
  Sender: FDA-Public Use
  Company Number: DE-ROCHE-2282388

PATIENT
  Sex: Male

DRUGS (10)
  1. METHOTREXATE [Suspect]
     Active Substance: METHOTREXATE
     Indication: Rheumatoid arthritis
     Dosage: 15 MILLIGRAM, QW
     Route: 065
  2. TOCILIZUMAB [Suspect]
     Active Substance: TOCILIZUMAB
     Indication: Rheumatoid arthritis
     Dosage: UNK
     Route: 065
     Dates: end: 201705
  3. TORSEMIDE [Concomitant]
     Active Substance: TORSEMIDE
     Dosage: 15 MILLIGRAM
  4. PANTOPRAZOLE [Concomitant]
     Active Substance: PANTOPRAZOLE
     Dosage: 40 MILLIGRAM, QD
  5. PREDNISOLONE [Concomitant]
     Active Substance: PREDNISOLONE
     Dosage: 5 MILLIGRAM, QD
  6. CLONIDINE [Concomitant]
     Active Substance: CLONIDINE
     Dosage: 75 MICROGRAM, QD
  7. ATENOLOL [Concomitant]
     Active Substance: ATENOLOL
     Dosage: 50 MILLIGRAM
  8. ATORVASTATIN [Concomitant]
     Active Substance: ATORVASTATIN
     Dosage: 10 MILLIGRAM, QD
  9. NIFEDIPINE [Concomitant]
     Active Substance: NIFEDIPINE
     Dosage: 20 MILLIGRAM
  10. ELIQUIS [Concomitant]
     Active Substance: APIXABAN
     Dosage: 5 MILLIGRAM, QD

REACTIONS (3)
  - Epididymitis [Recovered/Resolved]
  - Sepsis [Recovered/Resolved]
  - Hydrocele male infected [Recovered/Resolved]

NARRATIVE: CASE EVENT DATE: 20170501
